FAERS Safety Report 21459508 (Version 1)
Quarter: 2022Q4

REPORT INFORMATION
  Report Type: Report from Study
  Country: US (occurrence: US)
  Receive Date: 20221014
  Receipt Date: 20221014
  Transmission Date: 20230112
  Serious: Yes (Other)
  Sender: FDA-Public Use
  Company Number: US-JAZZ-2022-US-032292

PATIENT
  Sex: Male

DRUGS (1)
  1. XYREM [Suspect]
     Active Substance: SODIUM OXYBATE
     Indication: Exposure via breast milk
     Route: 063

REACTIONS (3)
  - Loss of consciousness [Recovered/Resolved]
  - Infant sedation [Recovered/Resolved]
  - Exposure via breast milk [Unknown]
